FAERS Safety Report 9756675 (Version 3)
Quarter: 2014Q1

REPORT INFORMATION
  Report Type: Spontaneous
  Country: JP (occurrence: JP)
  Receive Date: 20131213
  Receipt Date: 20140319
  Transmission Date: 20141002
  Serious: Yes (Death, Other)
  Sender: FDA-Public Use
  Company Number: JP-MALLINCKRODT-T201305089

PATIENT
  Age: 66 Year
  Sex: Male
  Weight: 53.8 kg

DRUGS (9)
  1. METHADONE [Suspect]
     Indication: CANCER PAIN
     Dosage: 10 MG, (30 MG DAILY DOSE)
     Route: 048
     Dates: start: 20131101, end: 20131105
  2. METHADONE [Suspect]
     Dosage: 15 MG, (45 MG DAILY DOSE)
     Route: 048
     Dates: start: 20131106, end: 20131117
  3. OXINORM [Concomitant]
     Dosage: 10 MG, PRN
     Route: 048
     Dates: start: 20131031
  4. LYRICA [Concomitant]
     Dosage: 150 MG, UNK
     Route: 048
     Dates: end: 20131117
  5. SENNOSIDE [Concomitant]
     Dosage: 4 MG, UNK
     Route: 048
     Dates: end: 20131117
  6. NOVAMIN [Concomitant]
     Dosage: 15 MG, UNK
     Route: 048
     Dates: end: 20131103
  7. LOXONIN [Concomitant]
     Dosage: 180 MG, UNK
     Route: 048
     Dates: end: 20131117
  8. CALONAL [Concomitant]
     Dosage: 1200 MG, UNK
     Route: 048
     Dates: end: 20131117
  9. LENDORMIN [Concomitant]
     Dosage: UNK
     Route: 048
     Dates: start: 20131111, end: 20131113

REACTIONS (3)
  - Lung neoplasm malignant [Fatal]
  - Hyperkalaemia [Unknown]
  - Insomnia [Recovering/Resolving]
